FAERS Safety Report 11091378 (Version 1)
Quarter: 2015Q2

REPORT INFORMATION
  Report Type: Spontaneous
  Country: US (occurrence: None)
  Receive Date: 20150504
  Receipt Date: 20150504
  Transmission Date: 20150821
  Serious: Yes (Disabling, Other)
  Sender: FDA-Public Use
  Company Number: None

PATIENT
  Age: 47 Year
  Sex: Male
  Weight: 118.84 kg

DRUGS (5)
  1. METFORMIN [Concomitant]
     Active Substance: METFORMIN HYDROCHLORIDE
  2. ASPIRIN. [Concomitant]
     Active Substance: ASPIRIN
  3. FARXIGA [Suspect]
     Active Substance: DAPAGLIFLOZIN PROPANEDIOL
     Indication: GLYCOSYLATED HAEMOGLOBIN INCREASED
     Dosage: 1
     Route: 048
     Dates: start: 20150408, end: 20150411
  4. LISINOPRIL. [Concomitant]
     Active Substance: LISINOPRIL
  5. ATORVASTATIN CALCIUM. [Concomitant]
     Active Substance: ATORVASTATIN CALCIUM

REACTIONS (26)
  - Muscular weakness [None]
  - Wheezing [None]
  - Somnolence [None]
  - Urticaria [None]
  - Dysphagia [None]
  - Lip swelling [None]
  - Urine abnormality [None]
  - Skin infection [None]
  - Chromaturia [None]
  - Micturition urgency [None]
  - Pharyngeal oedema [None]
  - Peripheral swelling [None]
  - Burning sensation [None]
  - Blood blister [None]
  - Rash [None]
  - Swelling face [None]
  - Dysuria [None]
  - Erythema [None]
  - Joint swelling [None]
  - Swollen tongue [None]
  - Eye swelling [None]
  - Pollakiuria [None]
  - Pruritus [None]
  - Arthralgia [None]
  - Drug ineffective [None]
  - Dysphonia [None]

NARRATIVE: CASE EVENT DATE: 20150411
